FAERS Safety Report 4491109-5 (Version None)
Quarter: 2004Q4

REPORT INFORMATION
  Report Type: 
  Country: None (occurrence: None)
  Receive Date: 20041027
  Receipt Date: 20041019
  Transmission Date: 20050328
  Serious: Yes (Other)
  Sender: FDA-Public Use
  Company Number: 2004201009BR

PATIENT
  Age: 21 Year
  Sex: Female

DRUGS (1)
  1. DEPO-PROVERA [Suspect]
     Indication: CONTRACEPTION
     Dosage: 150 MG/3 MONTHS, 1ST INJ., INTRAMUSCULAR
     Route: 030
     Dates: start: 20020201, end: 20020201

REACTIONS (3)
  - AMENORRHOEA [None]
  - LABYRINTHITIS [None]
  - WEIGHT INCREASED [None]
